FAERS Safety Report 9730888 (Version 6)
Quarter: 2014Q1

REPORT INFORMATION
  Report Type: Spontaneous
  Country: GB (occurrence: GB)
  Receive Date: 20131203
  Receipt Date: 20140313
  Transmission Date: 20141002
  Serious: Yes (Other)
  Sender: FDA-Public Use
  Company Number: GB-JNJFOC-20131200721

PATIENT
  Age: 8 Year
  Sex: Male
  Weight: 57.15 kg

DRUGS (16)
  1. ZYRTEC [Suspect]
     Indication: URTICARIA
     Route: 065
  2. ZYRTEC [Suspect]
     Indication: URTICARIA
     Route: 065
  3. ZYRTEC [Suspect]
     Indication: URTICARIA
     Route: 065
     Dates: start: 201311, end: 2013
  4. ZYRTEC [Suspect]
     Indication: URTICARIA
     Route: 065
     Dates: start: 2013
  5. EPIPEN [Concomitant]
     Indication: PRODUCT USED FOR UNKNOWN INDICATION
     Dosage: 300 MICROGRAMS/ 0.3 ML (1 IN 1000)
     Route: 065
  6. PIRITON [Concomitant]
     Indication: ANAPHYLAXIS PROPHYLAXIS
     Dosage: 2MG/ 5 ML
     Route: 065
  7. RANITIDINE [Concomitant]
     Indication: PRODUCT USED FOR UNKNOWN INDICATION
     Route: 065
  8. FEXOFENADINE [Concomitant]
     Indication: PRODUCT USED FOR UNKNOWN INDICATION
     Route: 065
  9. ALIMEMAZINE [Concomitant]
     Indication: PRODUCT USED FOR UNKNOWN INDICATION
     Dosage: 7.5MG/5ML - 100ML - 5ML TDS
     Route: 065
  10. DIPROBASE [Concomitant]
     Indication: PRODUCT USED FOR UNKNOWN INDICATION
     Route: 065
  11. XYZAL [Concomitant]
     Indication: PRODUCT USED FOR UNKNOWN INDICATION
     Route: 065
  12. PREDNISOLONE [Concomitant]
     Indication: PRODUCT USED FOR UNKNOWN INDICATION
     Route: 065
  13. OLOPATADINE [Concomitant]
     Indication: PRODUCT USED FOR UNKNOWN INDICATION
     Route: 065
  14. SALBUTAMOL [Concomitant]
     Indication: PRODUCT USED FOR UNKNOWN INDICATION
     Dosage: 100 MICROGRAMS
     Route: 065
  15. LEVOCETIRIZINE [Concomitant]
     Indication: PRODUCT USED FOR UNKNOWN INDICATION
     Dosage: 500 MICROGRAMS/ML SUGAR FEE
     Route: 065
  16. ALIMEMAZINE [Concomitant]
     Indication: PRODUCT USED FOR UNKNOWN INDICATION
     Route: 065

REACTIONS (15)
  - Anaphylactic reaction [Unknown]
  - Mental disorder [Unknown]
  - Lip dry [Unknown]
  - Skin disorder [Unknown]
  - Chapped lips [Unknown]
  - Sweat gland disorder [Unknown]
  - Cough [Unknown]
  - Urticaria [Unknown]
  - Rash [Unknown]
  - Lethargy [Unknown]
  - Rash [Unknown]
  - Malaise [Unknown]
  - Depressed mood [Recovering/Resolving]
  - Overdose [Unknown]
  - Drug ineffective [Unknown]
